FAERS Safety Report 6528806-3 (Version None)
Quarter: 2010Q1

REPORT INFORMATION
  Report Type: 
  Country: None (occurrence: None)
  Receive Date: 20100106
  Receipt Date: 20091229
  Transmission Date: 20100710
  Serious: Yes (Hospitalization, Other)
  Sender: FDA-Public Use
  Company Number: US-ELI_LILLY_AND_COMPANY-US200912006149

PATIENT
  Sex: Female
  Weight: 92.971 kg

DRUGS (8)
  1. BYETTA [Suspect]
     Indication: TYPE 2 DIABETES MELLITUS
     Dosage: 5 UG, 2/D
     Route: 058
     Dates: start: 20050801, end: 20070101
  2. BYETTA [Suspect]
     Dosage: 10 UG, 2/D
     Route: 058
     Dates: start: 20070101
  3. LOPRESSOR [Concomitant]
     Indication: BLOOD PRESSURE
  4. LOTENSIN [Concomitant]
     Indication: BLOOD PRESSURE
  5. ISOSORBIDE [Concomitant]
     Indication: CHEST PAIN
     Dosage: UNK, EACH MORNING
  6. ASPIRIN [Concomitant]
     Indication: ANTICOAGULANT THERAPY
     Dosage: 325 MG, DAILY (1/D)
  7. CADUET [Concomitant]
     Indication: BLOOD PRESSURE
  8. XANAX [Concomitant]
     Indication: ANXIETY
     Dosage: UNK, AS NEEDED

REACTIONS (10)
  - ARRHYTHMIA [None]
  - BLOOD GLUCOSE DECREASED [None]
  - BLOOD PRESSURE INCREASED [None]
  - CORONARY ARTERY DISEASE [None]
  - HAEMORRHAGE [None]
  - LOSS OF CONSCIOUSNESS [None]
  - NAUSEA [None]
  - OFF LABEL USE [None]
  - PLATELET COUNT DECREASED [None]
  - THYROID DISORDER [None]
